FAERS Safety Report 13896758 (Version 1)
Quarter: 2017Q3

REPORT INFORMATION
  Report Type: Report from Study
  Country: US (occurrence: US)
  Receive Date: 20170823
  Receipt Date: 20170823
  Transmission Date: 20171127
  Serious: Yes (Other)
  Sender: FDA-Public Use
  Company Number: US-SHIRE-US201718543

PATIENT
  Age: 36 Year
  Sex: Female

DRUGS (2)
  1. HUMAN IMMUNOGLOBULIN; HYALURONIDASE [Suspect]
     Active Substance: HUMAN IMMUNOGLOBULIN G\HYALURONIDASE RECOMBINANT HUMAN
     Indication: PRIMARY IMMUNODEFICIENCY SYNDROME
     Dosage: UNK
     Route: 065
     Dates: start: 2016
  2. HUMAN IMMUNOGLOBULIN; HYALURONIDASE [Suspect]
     Active Substance: HUMAN IMMUNOGLOBULIN G\HYALURONIDASE RECOMBINANT HUMAN
     Dosage: UNK
     Route: 065
     Dates: start: 20170801

REACTIONS (11)
  - Throat tightness [Unknown]
  - Procedural complication [Unknown]
  - Spinal fracture [Unknown]
  - Headache [Not Recovered/Not Resolved]
  - Rash [Unknown]
  - Infusion site pruritus [Unknown]
  - Musculoskeletal stiffness [Not Recovered/Not Resolved]
  - Post procedural complication [Unknown]
  - Skin striae [Unknown]
  - Scar [Unknown]
  - Infusion site pain [Unknown]

NARRATIVE: CASE EVENT DATE: 20170801
